FAERS Safety Report 23488596 (Version 1)
Quarter: 2024Q1

REPORT INFORMATION
  Report Type: Spontaneous
  Country: None (occurrence: US)
  Receive Date: 20240206
  Receipt Date: 20240206
  Transmission Date: 20240409
  Serious: No
  Sender: FDA-Public Use
  Company Number: US-Breckenridge Pharmaceutical, Inc.-2152738

PATIENT
  Age: 78 Year
  Sex: Female
  Weight: 47.727 kg

DRUGS (2)
  1. DULOXETINE [Suspect]
     Active Substance: DULOXETINE
     Indication: Neuropathy peripheral
     Route: 048
  2. VOLTAREN [Suspect]
     Active Substance: DICLOFENAC SODIUM

REACTIONS (4)
  - Product taste abnormal [Unknown]
  - Rash [Unknown]
  - Miliaria [Unknown]
  - Rash pruritic [Unknown]
